FAERS Safety Report 24296063 (Version 2)
Quarter: 2024Q4

REPORT INFORMATION
  Report Type: Spontaneous
  Country: US (occurrence: US)
  Receive Date: 20240909
  Receipt Date: 20241009
  Transmission Date: 20250114
  Serious: Yes (Other)
  Sender: BIOVITRUM
  Company Number: US-BIOVITRUM-2024-US-011751

PATIENT
  Age: 62 Year
  Sex: Female

DRUGS (1)
  1. KINERET [Suspect]
     Active Substance: ANAKINRA
     Indication: Still^s disease
     Dosage: 100 MG, DAILY
     Route: 058
     Dates: start: 20210714

REACTIONS (4)
  - Pain [Unknown]
  - Product dose omission in error [Unknown]
  - Pneumonia [Unknown]
  - Bronchitis [Unknown]
